FAERS Safety Report 4383785-2 (Version None)
Quarter: 2004Q2

REPORT INFORMATION
  Report Type: 
  Country: None (occurrence: None)
  Receive Date: 20040608
  Receipt Date: 20031007
  Transmission Date: 20050107
  Serious: Yes (Other)
  Sender: FDA-Public Use
  Company Number: 200313670BCC

PATIENT
  Age: 17 Year
  Sex: Female
  Weight: 58.9676 kg

DRUGS (1)
  1. ALEVE [Suspect]
     Indication: DYSMENORRHOEA
     Dosage: 440 MG, PRN, ORAL
     Route: 048
     Dates: start: 20031001, end: 20031003

REACTIONS (2)
  - ABDOMINAL PAIN [None]
  - UNEVALUABLE EVENT [None]
